FAERS Safety Report 8473494-2 (Version None)
Quarter: 2012Q2

REPORT INFORMATION
  Report Type: 
  Country: None (occurrence: None)
  Receive Date: 20120622
  Receipt Date: 20120622
  Transmission Date: 20120825
  Serious: Yes (Life-Threatening, Hospitalization, Other)
  Sender: FDA-Public Use
  Company Number: None

PATIENT
  Age: 81 Year
  Sex: Female
  Weight: 40.8237 kg

DRUGS (15)
  1. ASCORBIC ACID [Concomitant]
  2. COREG [Concomitant]
  3. LASIX [Concomitant]
  4. SYNTHROID [Concomitant]
  5. FERAHEME [Suspect]
     Indication: IRON DEFICIENCY ANAEMIA
     Dosage: 510 MG IV 2 DOSES ONE WEEK APART
     Route: 042
     Dates: start: 20120420, end: 20120427
  6. HUMALOG [Concomitant]
  7. HYDRALAZINE HYDROCHLORIDE [Concomitant]
  8. ROCALTROL [Concomitant]
  9. ATORVOSTATIN [Concomitant]
  10. PROTONIX [Concomitant]
  11. FERAHEME [Suspect]
     Indication: RENAL FAILURE CHRONIC
     Dates: start: 20120620, end: 20120620
  12. COLACE [Concomitant]
  13. PLAVIX [Concomitant]
  14. ASPIRIN [Concomitant]
  15. CARDURA [Concomitant]

REACTIONS (6)
  - VOMITING [None]
  - PRURITUS [None]
  - PULSE ABSENT [None]
  - URINARY INCONTINENCE [None]
  - DIZZINESS [None]
  - UNRESPONSIVE TO STIMULI [None]
